FAERS Safety Report 8501402-4 (Version None)
Quarter: 2012Q3

REPORT INFORMATION
  Report Type: 
  Country: None (occurrence: None)
  Receive Date: 20120710
  Receipt Date: 20120629
  Transmission Date: 20120928
  Serious: Yes (Hospitalization)
  Sender: FDA-Public Use
  Company Number: US-MYLANLABS-2012S1013404

PATIENT
  Age: 65 Year
  Sex: Male

DRUGS (10)
  1. INSULIN HUMAN [Suspect]
     Indication: TYPE 2 DIABETES MELLITUS
  2. BACLOFEN [Suspect]
  3. SAXAGLIPTIN [Suspect]
     Dates: start: 20120601
  4. INSULIN GLARGINE [Suspect]
     Indication: TYPE 2 DIABETES MELLITUS
  5. PLACEBO [Suspect]
     Indication: TYPE 2 DIABETES MELLITUS
     Dates: start: 20101211, end: 20110402
  6. HYDROCHLOROTHIAZIDE [Concomitant]
     Dates: start: 20111212, end: 20111214
  7. PLACEBO [Suspect]
     Dates: start: 20120601
  8. LISINOPRIL [Concomitant]
     Dates: end: 20110408
  9. SAXAGLIPTIN [Suspect]
     Indication: TYPE 2 DIABETES MELLITUS
     Dates: start: 20101211, end: 20110402
  10. ASPIRIN [Concomitant]

REACTIONS (4)
  - ENCEPHALOPATHY [None]
  - CHEST PAIN [None]
  - RENAL FAILURE ACUTE [None]
  - INFLUENZA [None]
